FAERS Safety Report 23079128 (Version 1)
Quarter: 2023Q4

REPORT INFORMATION
  Report Type: Spontaneous
  Country: CN (occurrence: CN)
  Receive Date: 20231018
  Receipt Date: 20231018
  Transmission Date: 20240109
  Serious: Yes (Other)
  Sender: FDA-Public Use
  Company Number: CN-PFIZER INC-202300327176

PATIENT
  Age: 6 Decade
  Sex: Female

DRUGS (1)
  1. IBRANCE [Suspect]
     Active Substance: PALBOCICLIB
     Indication: Breast cancer
     Dosage: ONE DF PER TIME, ONCE DAILY, ORALLY
     Route: 048
     Dates: end: 20231011

REACTIONS (1)
  - Radiation pneumonitis [Unknown]
